FAERS Safety Report 10406830 (Version 4)
Quarter: 2014Q3

REPORT INFORMATION
  Report Type: Report from Study
  Country: US (occurrence: US)
  Receive Date: 20140825
  Receipt Date: 20140929
  Transmission Date: 20150326
  Serious: Yes (Hospitalization)
  Sender: FDA-Public Use
  Company Number: US-PFIZER INC-2014233122

PATIENT
  Age: 50 Year
  Sex: Male
  Weight: 75.82 kg

DRUGS (29)
  1. NORCO [Concomitant]
     Active Substance: ACETAMINOPHEN\HYDROCODONE BITARTRATE
     Indication: PAIN
  2. ENOXAPARIN [Concomitant]
     Active Substance: ENOXAPARIN
     Indication: THROMBOSIS PROPHYLAXIS
     Dosage: 40 MG, 1X/DAY
     Route: 058
     Dates: start: 20140709, end: 20140715
  3. BLINDED BUPROPION HCL [Suspect]
     Active Substance: BUPROPION HYDROCHLORIDE
     Dosage: BLINDED THERAPY, 1X/DAY
     Route: 062
     Dates: start: 20140318, end: 20140603
  4. MORPHINE SULFATE. [Suspect]
     Active Substance: MORPHINE SULFATE
     Indication: PROCEDURAL PAIN
     Dosage: 1 MG, EVERY 6MIN
     Route: 042
     Dates: start: 20140709, end: 20140711
  5. PLACEBO [Suspect]
     Active Substance: UNSPECIFIED INGREDIENT
     Indication: SMOKING CESSATION THERAPY
     Dosage: BLINDED THERAPY, 2X/DAY
     Route: 048
     Dates: start: 20140311, end: 20140603
  6. PLACEBO [Suspect]
     Active Substance: UNSPECIFIED INGREDIENT
     Dosage: BLINDED THERAPY, 1X/DAY
     Route: 062
     Dates: start: 20140318, end: 20140603
  7. BLINDED VARENICLINE TARTRATE [Suspect]
     Active Substance: VARENICLINE TARTRATE
     Dosage: BLINDED THERAPY, 1X/DAY
     Route: 062
     Dates: start: 20140318, end: 20140603
  8. PLACEBO [Suspect]
     Active Substance: UNSPECIFIED INGREDIENT
     Indication: SMOKING CESSATION THERAPY
     Dosage: BLINDED THERAPY, 2X/DAY
     Route: 048
     Dates: start: 20140311, end: 20140603
  9. PLACEBO [Suspect]
     Active Substance: UNSPECIFIED INGREDIENT
     Indication: SMOKING CESSATION THERAPY
     Dosage: BLINDED THERAPY, 2X/DAY
     Route: 048
     Dates: start: 20140311, end: 20140603
  10. BLINDED VARENICLINE TARTRATE [Suspect]
     Active Substance: VARENICLINE TARTRATE
     Indication: SMOKING CESSATION THERAPY
     Dosage: BLINDED THERAPY, 2X/DAY
     Route: 048
     Dates: start: 20140311, end: 20140603
  11. BLINDED VARENICLINE TARTRATE [Suspect]
     Active Substance: VARENICLINE TARTRATE
     Indication: SMOKING CESSATION THERAPY
     Dosage: BLINDED THERAPY, 2X/DAY
     Route: 048
     Dates: start: 20140311, end: 20140603
  12. BLINDED NICOTINE [Suspect]
     Active Substance: NICOTINE
     Dosage: BLINDED THERAPY, 1X/DAY
     Route: 062
     Dates: start: 20140318, end: 20140603
  13. POTASSIUM CHLORIDE. [Concomitant]
     Active Substance: POTASSIUM CHLORIDE
     Indication: HYPOKALAEMIA
     Dosage: 20 MEQ, SINGLE
     Route: 042
     Dates: start: 20140710, end: 20140710
  14. PNEUMOCOCCAL VACCINE [Concomitant]
     Active Substance: PNEUMOCOCCAL VACCINE POLYVALENT
     Indication: ROUTINE HEALTH MAINTENANCE
     Dosage: 25 UG, SINGLE
     Route: 030
     Dates: start: 20140709, end: 20140709
  15. BLINDED BUPROPION HCL [Suspect]
     Active Substance: BUPROPION HYDROCHLORIDE
     Indication: SMOKING CESSATION THERAPY
     Dosage: BLINDED THERAPY, 2X/DAY
     Route: 048
     Dates: start: 20140311, end: 20140603
  16. BLINDED NICOTINE [Suspect]
     Active Substance: NICOTINE
     Dosage: BLINDED THERAPY, 1X/DAY
     Route: 062
     Dates: start: 20140318, end: 20140603
  17. PLACEBO [Suspect]
     Active Substance: UNSPECIFIED INGREDIENT
     Dosage: BLINDED THERAPY, 1X/DAY
     Route: 062
     Dates: start: 20140318, end: 20140603
  18. PLACEBO [Suspect]
     Active Substance: UNSPECIFIED INGREDIENT
     Dosage: BLINDED THERAPY, 1X/DAY
     Route: 062
     Dates: start: 20140318, end: 20140603
  19. MORPHINE SULFATE. [Suspect]
     Active Substance: MORPHINE SULFATE
     Indication: PAIN
  20. BLINDED BUPROPION HCL [Suspect]
     Active Substance: BUPROPION HYDROCHLORIDE
     Indication: SMOKING CESSATION THERAPY
     Dosage: BLINDED THERAPY, 2X/DAY
     Route: 048
     Dates: start: 20140311, end: 20140603
  21. BLINDED NICOTINE [Suspect]
     Active Substance: NICOTINE
     Indication: SMOKING CESSATION THERAPY
     Dosage: BLINDED THERAPY, 2X/DAY
     Route: 048
     Dates: start: 20140311, end: 20140603
  22. BLINDED VARENICLINE TARTRATE [Suspect]
     Active Substance: VARENICLINE TARTRATE
     Dosage: BLINDED THERAPY, 1X/DAY
     Route: 062
     Dates: start: 20140318, end: 20140603
  23. BLINDED NICOTINE [Suspect]
     Active Substance: NICOTINE
     Indication: SMOKING CESSATION THERAPY
     Dosage: BLINDED THERAPY, 2X/DAY
     Route: 048
     Dates: start: 20140311, end: 20140603
  24. BLINDED BUPROPION HCL [Suspect]
     Active Substance: BUPROPION HYDROCHLORIDE
     Dosage: BLINDED THERAPY, 1X/DAY
     Route: 062
     Dates: start: 20140318, end: 20140603
  25. NORCO [Concomitant]
     Active Substance: ACETAMINOPHEN\HYDROCODONE BITARTRATE
     Indication: PROCEDURAL PAIN
     Dosage: HYDROCODONE BITARTRATE 7.5 MG / PARACETAMOL 325 MG, EVERY FOUR HOURS AS NEEDED
     Route: 048
     Dates: start: 20140709
  26. ALVIMOPAN [Concomitant]
     Active Substance: ALVIMOPAN
     Indication: PAIN
     Dosage: 12 MG, 2X/DAY
     Route: 048
     Dates: start: 20140709, end: 20140712
  27. ACETAMINOPHEN. [Concomitant]
     Active Substance: ACETAMINOPHEN
     Indication: PAIN
     Dosage: 1000 MG, 3X/DAY (Q8HRS)
     Route: 042
     Dates: start: 20140709, end: 20140714
  28. MAGNESIUM SULFATE [Concomitant]
     Active Substance: MAGNESIUM SULFATE
     Indication: HYPOMAGNESAEMIA
     Dosage: 2 G, SINGLE
     Route: 042
     Dates: start: 20140710, end: 20140710
  29. ERTAPENEM [Concomitant]
     Active Substance: ERTAPENEM
     Indication: PREOPERATIVE CARE
     Dosage: 1 G, SINGLE
     Route: 042
     Dates: start: 20140709, end: 20140709

REACTIONS (1)
  - Ileus [Recovered/Resolved]

NARRATIVE: CASE EVENT DATE: 20140712
